FAERS Safety Report 13652287 (Version 3)
Quarter: 2018Q1

REPORT INFORMATION
  Report Type: Spontaneous
  Country: US (occurrence: US)
  Receive Date: 20170614
  Receipt Date: 20180309
  Transmission Date: 20180508
  Serious: No
  Sender: FDA-Public Use
  Company Number: US-LEXICON PHARMACEUTICALS, INC-17-1606-00276

PATIENT
  Sex: Female

DRUGS (15)
  1. TELOTRISTAT ETHYL [Suspect]
     Active Substance: TELOTRISTAT ETHYL
     Indication: CARCINOID SYNDROME
     Route: 048
     Dates: start: 20170407, end: 2017
  2. OCTREOTIDE ACETATE. [Concomitant]
     Active Substance: OCTREOTIDE ACETATE
  3. PANTOPRAZOLE SODIUM. [Concomitant]
     Active Substance: PANTOPRAZOLE SODIUM
  4. PENNSAID [Concomitant]
     Active Substance: DICLOFENAC SODIUM
  5. CREON [Concomitant]
     Active Substance: PANCRELIPASE AMYLASE\PANCRELIPASE LIPASE\PANCRELIPASE PROTEASE
  6. MICONAZOLE. [Concomitant]
     Active Substance: MICONAZOLE
  7. GELCLAIR [Concomitant]
  8. CLONAZEPAM. [Concomitant]
     Active Substance: CLONAZEPAM
  9. OXYCODONE [Concomitant]
     Active Substance: OXYCODONE
  10. VITAMIN B COMPLEX [Concomitant]
     Active Substance: CYANOCOBALAMIN\DEXPANTHENOL\NIACINAMIDE\PYRIDOXINE HYDROCHLORIDE\RIBOFLAVIN 5^-PHOSPHATE SODIUM\THIAMINE HYDROCHLORIDE\VITAMIN B COMPLEX
  11. CYANOCOBALAM [Concomitant]
  12. TELOTRISTAT ETHYL [Suspect]
     Active Substance: TELOTRISTAT ETHYL
     Route: 048
     Dates: start: 201705
  13. FLECTOR [Concomitant]
     Active Substance: DICLOFENAC EPOLAMINE
  14. SANDOSTATIN [Concomitant]
     Active Substance: OCTREOTIDE ACETATE
  15. SOMA [Concomitant]
     Active Substance: CARISOPRODOL

REACTIONS (3)
  - Off label use [Not Recovered/Not Resolved]
  - Gastrointestinal disorder [Unknown]
  - Pain [Unknown]

NARRATIVE: CASE EVENT DATE: 2017
